FAERS Safety Report 6269501-8 (Version None)
Quarter: 2009Q3

REPORT INFORMATION
  Report Type: 
  Country: None (occurrence: None)
  Receive Date: 20090715
  Receipt Date: 20090630
  Transmission Date: 20100115
  Serious: No
  Sender: FDA-Public Use
  Company Number: JP-PFIZER INC-2009238055

PATIENT
  Age: 52 Year

DRUGS (1)
  1. MIGLITOL [Suspect]
     Dosage: 100 MG, UNK
     Route: 048
     Dates: start: 20081010

REACTIONS (3)
  - ALANINE AMINOTRANSFERASE INCREASED [None]
  - BLOOD ALKALINE PHOSPHATASE INCREASED [None]
  - GAMMA-GLUTAMYLTRANSFERASE INCREASED [None]
